FAERS Safety Report 9260823 (Version 1)
Quarter: 2013Q2

REPORT INFORMATION
  Report Type: Spontaneous
  Country: FR (occurrence: FR)
  Receive Date: 20130429
  Receipt Date: 20130429
  Transmission Date: 20140414
  Serious: Yes (Hospitalization)
  Sender: FDA-Public Use
  Company Number: FR-ROCHE-1218090

PATIENT
  Age: 17 Year
  Sex: Male

DRUGS (12)
  1. PEGASYS [Suspect]
     Indication: HEPATITIS C
     Route: 065
     Dates: start: 20121214
  2. REBETOL [Suspect]
     Indication: HEPATITIS C
     Route: 065
     Dates: start: 20121214
  3. INCIVO [Suspect]
     Indication: HEPATITIS C
     Route: 065
     Dates: start: 20121214
  4. LASILIX [Suspect]
     Indication: PRODUCT USED FOR UNKNOWN INDICATION
     Route: 065
     Dates: end: 201302
  5. PERINDOPRIL [Suspect]
     Indication: PRODUCT USED FOR UNKNOWN INDICATION
     Route: 065
     Dates: end: 201302
  6. PREVISCAN [Suspect]
     Indication: PRODUCT USED FOR UNKNOWN INDICATION
     Dosage: SCORED TABLET
     Route: 065
     Dates: end: 201302
  7. TARDYFERON B9 [Concomitant]
  8. ALPRAZOLAM [Concomitant]
  9. INEXIUM [Concomitant]
     Route: 065
  10. CRESTOR [Concomitant]
  11. POLARAMINE [Concomitant]
     Dosage: 1 DF IN MORNING AND 1DF IN THE EVENING
     Route: 065
  12. DIPROSONE [Concomitant]
     Route: 065

REACTIONS (5)
  - Bicytopenia [Recovering/Resolving]
  - Oedema peripheral [Recovered/Resolved]
  - Pruritus [Recovered/Resolved]
  - Urticaria [Recovered/Resolved]
  - Renal failure [Recovering/Resolving]
